FAERS Safety Report 5116196-2 (Version None)
Quarter: 2006Q3

REPORT INFORMATION
  Report Type: 
  Country: None (occurrence: None)
  Receive Date: 20060927
  Receipt Date: 20060731
  Transmission Date: 20061208
  Serious: No
  Sender: FDA-Public Use
  Company Number: US-BRISTOL-MYERS SQUIBB COMPANY-13460530

PATIENT
  Age: 46 Year
  Sex: Female
  Weight: 73 kg

DRUGS (3)
  1. DEFINITY [Suspect]
     Indication: STRESS ECHOCARDIOGRAM
     Route: 042
     Dates: start: 20060726, end: 20060726
  2. ZYRTEC [Concomitant]
  3. DIOVAN [Concomitant]

REACTIONS (4)
  - DIZZINESS [None]
  - LOCAL SWELLING [None]
  - PARAESTHESIA [None]
  - VISUAL DISTURBANCE [None]
